FAERS Safety Report 23811586 (Version 5)
Quarter: 2024Q2

REPORT INFORMATION
  Report Type: Spontaneous
  Country: US (occurrence: None)
  Receive Date: 20240503
  Receipt Date: 20240608
  Transmission Date: 20240716
  Serious: Yes (Other)
  Sender: FDA-Public Use
  Company Number: US-ROCHE-3552252

PATIENT

DRUGS (4)
  1. VABYSMO [Suspect]
     Active Substance: FARICIMAB\FARICIMAB-SVOA
     Indication: Type 2 diabetes mellitus
     Dosage: 6MG/0.05ML,  THE START FREQUENCY WAS EVERY MONTH.?LEFT AND RIGHT EYE 1 VIAL EACH. ON 18/APR/2024, TO
     Route: 050
     Dates: start: 20220412
  2. VABYSMO [Suspect]
     Active Substance: FARICIMAB\FARICIMAB-SVOA
     Indication: Diabetic retinopathy
     Dosage: AS OF -NOV-2022, THE FREQUENCY IS EVERY 2 MONTHS AND MOST RECENTLY APPEARS TO BE EVERY 2 MONTHS.
     Route: 050
     Dates: start: 202211
  3. VABYSMO [Suspect]
     Active Substance: FARICIMAB\FARICIMAB-SVOA
     Indication: Macular oedema
  4. LIDOCAINE [Concomitant]
     Active Substance: LIDOCAINE

REACTIONS (2)
  - Endophthalmitis [Recovering/Resolving]
  - Suspected transmission of an infectious agent via product [Unknown]

NARRATIVE: CASE EVENT DATE: 20240420
